FAERS Safety Report 7364397-5 (Version None)
Quarter: 2011Q1

REPORT INFORMATION
  Report Type: 
  Country: None (occurrence: None)
  Receive Date: 20110321
  Receipt Date: 20110311
  Transmission Date: 20110831
  Serious: Yes (Other)
  Sender: FDA-Public Use
  Company Number: JP-JNJFOC-20110303695

PATIENT
  Age: 85 Year
  Sex: Female

DRUGS (5)
  1. ITRACONAZOLE [Suspect]
     Indication: URINARY TRACT INFECTION
     Route: 041
  2. ANTIDIARRHEALS [Concomitant]
     Route: 065
  3. TPN [Concomitant]
     Route: 042
  4. ITRACONAZOLE [Suspect]
     Route: 048
  5. ANTIFLATULENTS [Concomitant]
     Route: 065

REACTIONS (2)
  - ELECTROCARDIOGRAM ABNORMAL [None]
  - SINUS BRADYCARDIA [None]
